FAERS Safety Report 10086407 (Version 1)
Quarter: 2014Q2

REPORT INFORMATION
  Report Type: Spontaneous
  Country: US (occurrence: US)
  Receive Date: 20140418
  Receipt Date: 20140418
  Transmission Date: 20141212
  Serious: No
  Sender: FDA-Public Use
  Company Number: US-ENDO PHARMACEUTICALS INC.-FURO20140002

PATIENT
  Age: 78 Year
  Sex: Male

DRUGS (2)
  1. FUROSEMIDE TABLETS 20MG [Suspect]
     Indication: OEDEMA
     Route: 048
     Dates: start: 20131205
  2. LASIX [Concomitant]
     Indication: OEDEMA
     Dosage: UNK
     Route: 065
     Dates: end: 20131204

REACTIONS (1)
  - Drug ineffective [Not Recovered/Not Resolved]
